FAERS Safety Report 22299455 (Version 1)
Quarter: 2023Q2

REPORT INFORMATION
  Report Type: Spontaneous
  Country: CA (occurrence: CA)
  Receive Date: 20230509
  Receipt Date: 20230509
  Transmission Date: 20230722
  Serious: Yes (Other)
  Sender: FDA-Public Use
  Company Number: CA-TEVA-2023-CA-2883884

PATIENT
  Age: 83 Year
  Sex: Female

DRUGS (3)
  1. FENTANYL [Suspect]
     Active Substance: FENTANYL
     Indication: Sedation
     Route: 050
  2. FENTANYL [Suspect]
     Active Substance: FENTANYL
     Indication: Oesophagogastroduodenoscopy
  3. VERSED [Concomitant]
     Active Substance: MIDAZOLAM HYDROCHLORIDE
     Indication: Product used for unknown indication
     Route: 030

REACTIONS (2)
  - Depressed level of consciousness [Unknown]
  - Obstructive airways disorder [Unknown]
